FAERS Safety Report 13460564 (Version 2)
Quarter: 2017Q3

REPORT INFORMATION
  Report Type: Spontaneous
  Country: US (occurrence: US)
  Receive Date: 20170420
  Receipt Date: 20170720
  Transmission Date: 20171127
  Serious: No
  Sender: FDA-Public Use
  Company Number: US-PFIZER INC-2017171645

PATIENT
  Age: 59 Year
  Sex: Female

DRUGS (4)
  1. IBRANCE [Suspect]
     Active Substance: PALBOCICLIB
     Dosage: 100 MG, UNK
     Dates: start: 2016
  2. IBRANCE [Suspect]
     Active Substance: PALBOCICLIB
     Dosage: 75 MG, UNK
     Dates: start: 20170405
  3. LETROZOLE. [Suspect]
     Active Substance: LETROZOLE
     Dosage: UNK
     Dates: start: 2016
  4. LETROZOLE. [Suspect]
     Active Substance: LETROZOLE
     Dosage: 2.5 MG, UNK
     Dates: start: 20170405

REACTIONS (4)
  - Alopecia [Unknown]
  - Fatigue [Unknown]
  - Nasopharyngitis [Unknown]
  - Nasal congestion [Unknown]
